FAERS Safety Report 9390455 (Version 1)
Quarter: 2013Q2

REPORT INFORMATION
  Report Type: Spontaneous
  Country: US (occurrence: None)
  Receive Date: 20130620
  Receipt Date: 20130620
  Transmission Date: 20140414
  Serious: Yes (Hospitalization)
  Sender: FDA-Public Use
  Company Number: 2013PROUSA02872

PATIENT
  Age: 75 Year
  Sex: Male
  Weight: 62.6 kg

DRUGS (1)
  1. PROVENGE (SIPULEUCEL-T) SUSPENSION, 250ML [Suspect]
     Indication: PROSTATE CANCER METASTATIC
     Dosage: 250 ML, SINGLE , INTRAVENOUS
     Route: 042
     Dates: start: 20130524, end: 20130524

REACTIONS (2)
  - Pneumonia [None]
  - Vomiting [None]
